FAERS Safety Report 8146071 (Version 2)
Quarter: 2013Q4

REPORT INFORMATION
  Report Type: Spontaneous
  Country: US (occurrence: US)
  Receive Date: 20110921
  Receipt Date: 20131118
  Transmission Date: 20140711
  Serious: No
  Sender: FDA-Public Use
  Company Number: US-JNJFOC-20110905235

PATIENT
  Age: 53 Year
  Sex: Male
  Weight: 111.59 kg

DRUGS (4)
  1. DURAGESIC [Suspect]
     Indication: NERVE INJURY
     Route: 062
     Dates: start: 2011, end: 2011
  2. DURAGESIC [Suspect]
     Indication: NERVE INJURY
     Route: 062
     Dates: start: 2008, end: 2011
  3. DURAGESIC [Suspect]
     Indication: NERVE INJURY
     Route: 062
     Dates: start: 2011
  4. PERCOCET [Concomitant]
     Indication: BREAKTHROUGH PAIN
     Dosage: 10/650 MG
     Route: 048
     Dates: start: 2008

REACTIONS (9)
  - Muscle spasms [Not Recovered/Not Resolved]
  - Sensory disturbance [Not Recovered/Not Resolved]
  - Inappropriate schedule of drug administration [Not Recovered/Not Resolved]
  - Neuralgia [Not Recovered/Not Resolved]
  - Drug effect increased [Recovered/Resolved]
  - Product quality issue [Not Recovered/Not Resolved]
  - Product quality issue [Not Recovered/Not Resolved]
  - Product packaging issue [Unknown]
  - Product quality issue [Unknown]
